FAERS Safety Report 18807953 (Version 1)
Quarter: 2021Q1

REPORT INFORMATION
  Report Type: Spontaneous
  Country: US (occurrence: US)
  Receive Date: 20210129
  Receipt Date: 20210129
  Transmission Date: 20210419
  Serious: Yes (Other)
  Sender: FDA-Public Use
  Company Number: US-GLAXOSMITHKLINE-US2021012429

PATIENT
  Sex: Female

DRUGS (1)
  1. BENLYSTA [Suspect]
     Active Substance: BELIMUMAB
     Indication: SYSTEMIC LUPUS ERYTHEMATOSUS
     Dosage: 1 DF, WE
     Dates: start: 2016

REACTIONS (12)
  - Pain [Not Recovered/Not Resolved]
  - Emotional disorder [Unknown]
  - Extra dose administered [Unknown]
  - Agitation [Unknown]
  - Wrong technique in device usage process [Unknown]
  - Therapeutic response shortened [Unknown]
  - Oropharyngeal pain [Unknown]
  - Knee arthroplasty [Unknown]
  - Confusional state [Unknown]
  - Incorrect dose administered [Unknown]
  - Product dose omission issue [Unknown]
  - Systemic lupus erythematosus [Unknown]
